FAERS Safety Report 4439327-6 (Version None)
Quarter: 2004Q3

REPORT INFORMATION
  Report Type: 
  Country: None (occurrence: None)
  Receive Date: 20040831
  Receipt Date: 20040820
  Transmission Date: 20050211
  Serious: Yes (Life-Threatening, Other)
  Sender: FDA-Public Use
  Company Number: MC200400230

PATIENT
  Age: 79 Year
  Sex: Male
  Weight: 93.4 kg

DRUGS (7)
  1. ANGIOMAX [Suspect]
     Indication: ANTICOAGULANT THERAPY
     Dosage: SEE IMAGE
     Route: 040
     Dates: start: 20040813, end: 20040813
  2. ANGIOMAX [Suspect]
     Indication: ANTICOAGULANT THERAPY
     Dosage: SEE IMAGE
     Route: 040
     Dates: start: 20040813, end: 20040813
  3. CONTRAST MEDIA () [Suspect]
     Dates: start: 20040813, end: 20040813
  4. VERSED [Concomitant]
  5. DILAUDID [Concomitant]
  6. LIDOCAINE [Concomitant]
  7. PLAVIX [Concomitant]

REACTIONS (7)
  - CHEST PAIN [None]
  - DYSPNOEA [None]
  - ELECTROCARDIOGRAM ST-T CHANGE [None]
  - HYPERSENSITIVITY [None]
  - HYPOTENSION [None]
  - INJECTION SITE BURNING [None]
  - RASH [None]
